FAERS Safety Report 7872349-1 (Version None)
Quarter: 2011Q4

REPORT INFORMATION
  Report Type: 
  Country: None (occurrence: None)
  Receive Date: 20111030
  Receipt Date: 20110318
  Transmission Date: 20120403
  Serious: No
  Sender: FDA-Public Use
  Company Number: US-AMGEN-USASP2011015048

PATIENT
  Age: 54 Year
  Sex: Male

DRUGS (1)
  1. ENBREL [Suspect]
     Indication: ANKYLOSING SPONDYLITIS
     Dosage: 50 MG, Q2WK
     Dates: start: 20040531

REACTIONS (5)
  - INFLUENZA [None]
  - NASOPHARYNGITIS [None]
  - ANKYLOSING SPONDYLITIS [None]
  - DECREASED IMMUNE RESPONSIVENESS [None]
  - ARTHRITIS [None]
